FAERS Safety Report 19001565 (Version 1)
Quarter: 2021Q1

REPORT INFORMATION
  Report Type: Spontaneous
  Country: US (occurrence: US)
  Receive Date: 20210312
  Receipt Date: 20210312
  Transmission Date: 20210420
  Serious: No
  Sender: FDA-Public Use
  Company Number: US-FARMAPROD-202010-1390

PATIENT
  Sex: Male

DRUGS (11)
  1. ASPIRINE [Concomitant]
     Active Substance: ASPIRIN
  2. PREDNISOLONE. [Concomitant]
     Active Substance: PREDNISOLONE
     Dosage: 15 MG/5ML
  3. LOSARTAN POTASSIUM. [Concomitant]
     Active Substance: LOSARTAN POTASSIUM
  4. TERAZOSIN HCL [Concomitant]
     Active Substance: TERAZOSIN HYDROCHLORIDE
  5. TIMOLOL/LATANOPROST [Concomitant]
  6. OXERVATE [Suspect]
     Active Substance: CENEGERMIN-BKBJ
     Indication: NEUROTROPHIC KERATOPATHY
     Route: 047
     Dates: start: 20201015
  7. OXERVATE [Suspect]
     Active Substance: CENEGERMIN-BKBJ
     Indication: ULCERATIVE KERATITIS
  8. MAGNESIUM [Concomitant]
     Active Substance: MAGNESIUM
  9. OFLOXACIN. [Concomitant]
     Active Substance: OFLOXACIN
  10. ACICLOVIR [Concomitant]
     Active Substance: ACYCLOVIR
  11. LORAZEPAM. [Concomitant]
     Active Substance: LORAZEPAM

REACTIONS (2)
  - Eye irritation [Unknown]
  - Lacrimation increased [Unknown]
